FAERS Safety Report 9734294 (Version 3)
Quarter: 2014Q3

REPORT INFORMATION
  Report Type: Spontaneous
  Country: BE (occurrence: BE)
  Receive Date: 20131205
  Receipt Date: 20140725
  Transmission Date: 20150326
  Serious: Yes (Other)
  Sender: FDA-Public Use
  Company Number: BE-AMGEN-BELSP2013084505

PATIENT
  Sex: Female

DRUGS (1)
  1. XGEVA [Suspect]
     Active Substance: DENOSUMAB
     Indication: METASTASES TO BONE
     Dosage: UNK
     Route: 065
     Dates: start: 201209

REACTIONS (5)
  - Osteonecrosis of jaw [Unknown]
  - Tooth extraction [Unknown]
  - Dental fistula [Unknown]
  - Osteomyelitis [Unknown]
  - Periodontal disease [Unknown]

NARRATIVE: CASE EVENT DATE: 20131009
